FAERS Safety Report 26192725 (Version 1)
Quarter: 2025Q4

REPORT INFORMATION
  Report Type: Spontaneous
  Country: US (occurrence: US)
  Receive Date: 20251223
  Receipt Date: 20251223
  Transmission Date: 20260118
  Serious: No
  Sender: FRESENIUS KABI
  Company Number: US-FreseniusKabi-FK202517247

PATIENT

DRUGS (2)
  1. SENSORCAINE MPF [Suspect]
     Active Substance: BUPIVACAINE HYDROCHLORIDE
     Indication: Pain management
     Dosage: INJECTION?30 ML MULTI-DOSE VIAL
     Route: 056
  2. SENSORCAINE MPF [Suspect]
     Active Substance: BUPIVACAINE HYDROCHLORIDE
     Dosage: INJECTION?30 ML MULTI-DOSE VIAL
     Route: 056

REACTIONS (1)
  - Therapeutic product effect decreased [Unknown]
